FAERS Safety Report 14848324 (Version 1)
Quarter: 2018Q2

REPORT INFORMATION
  Report Type: Spontaneous
  Country: US (occurrence: US)
  Receive Date: 20180504
  Receipt Date: 20180504
  Transmission Date: 20180711
  Serious: No
  Sender: FDA-Public Use
  Company Number: US-TEVA-2018-US-886937

PATIENT
  Sex: Female

DRUGS (1)
  1. METOPROLOL. [Suspect]
     Active Substance: METOPROLOL
     Route: 065

REACTIONS (3)
  - Feeling abnormal [Unknown]
  - Adverse reaction [Unknown]
  - Respiration abnormal [Unknown]
